FAERS Safety Report 5447891-3 (Version None)
Quarter: 2007Q3

REPORT INFORMATION
  Report Type: 
  Country: None (occurrence: None)
  Receive Date: 20070910
  Receipt Date: 20070831
  Transmission Date: 20080115
  Serious: Yes (Other)
  Sender: FDA-Public Use
  Company Number: US-PFIZER INC-2007010405

PATIENT
  Sex: Male
  Weight: 88.5 kg

DRUGS (7)
  1. LIPITOR [Suspect]
     Indication: BLOOD CHOLESTEROL INCREASED
     Dates: start: 20050301, end: 20060101
  2. CELEBREX [Concomitant]
     Dosage: DAILY DOSE:200MG-FREQ:DAILY
  3. NITROGLYCERIN [Concomitant]
  4. VIAGRA [Concomitant]
  5. ASPIRIN [Concomitant]
     Dosage: TEXT:80-81MG-FREQ:DAILY
  6. ALTACE [Concomitant]
     Dosage: DAILY DOSE:10MG-FREQ:DAILY
     Dates: end: 20050101
  7. VALSARTAN [Concomitant]
     Dosage: DAILY DOSE:160MG-FREQ:DAILY

REACTIONS (4)
  - ARTHRALGIA [None]
  - DYSSTASIA [None]
  - MUSCULAR WEAKNESS [None]
  - PAIN IN EXTREMITY [None]
